FAERS Safety Report 6033537-2 (Version None)
Quarter: 2009Q1

REPORT INFORMATION
  Report Type: 
  Country: None (occurrence: None)
  Receive Date: 20090109
  Receipt Date: 20090107
  Transmission Date: 20090719
  Serious: Yes (Hospitalization)
  Sender: FDA-Public Use
  Company Number: US-GILEAD-2009-0019738

PATIENT
  Sex: Female
  Weight: 81.266 kg

DRUGS (21)
  1. LETAIRIS [Suspect]
     Indication: PULMONARY ARTERIAL HYPERTENSION
     Route: 048
     Dates: start: 20080130
  2. REPLIVA [Concomitant]
  3. CEFUROXIME AXETIL [Concomitant]
  4. CLINDAMYCIN HCL [Concomitant]
  5. HYDROCODONE BITARTRATE + ACETAMINOPHEN [Concomitant]
  6. ISOSORBIDE DINITRATE [Concomitant]
  7. FLUOXETINE [Concomitant]
  8. OXYGEN [Concomitant]
  9. LASIX [Concomitant]
  10. COUMADIN [Concomitant]
  11. LIPITOR [Concomitant]
  12. SYNTHROID [Concomitant]
  13. STARLIX [Concomitant]
  14. FOLIC ACID [Concomitant]
  15. METFORMIN HCL [Concomitant]
  16. ALBUTEROL [Concomitant]
  17. HYDRALAZINE HCL [Concomitant]
  18. PRILOSEC [Concomitant]
  19. SPIRONOLACTONE [Concomitant]
  20. TYLENOL (CAPLET) [Concomitant]
  21. POTASSIUM CHLORIDE [Concomitant]

REACTIONS (1)
  - THYROID FUNCTION TEST ABNORMAL [None]
